FAERS Safety Report 5755773-2 (Version None)
Quarter: 2008Q2

REPORT INFORMATION
  Report Type: 
  Country: None (occurrence: None)
  Receive Date: 20080602
  Receipt Date: 20080521
  Transmission Date: 20081010
  Serious: Yes (Death)
  Sender: FDA-Public Use
  Company Number: US-AVENTIS-200813254US

PATIENT
  Sex: Male

DRUGS (2)
  1. ALLEGRA [Suspect]
     Dosage: DOSE: UNK
  2. GRAPEFRUIT JUICE [Suspect]
     Dosage: DOSE: UNK

REACTIONS (1)
  - DRUG TOXICITY [None]
